FAERS Safety Report 24381057 (Version 2)
Quarter: 2024Q4

REPORT INFORMATION
  Report Type: Report from Study
  Country: US (occurrence: US)
  Receive Date: 20240930
  Receipt Date: 20241107
  Transmission Date: 20250115
  Serious: Yes (Other)
  Sender: ABBVIE
  Company Number: US-ABBVIE-5905611

PATIENT
  Age: 78 Year
  Sex: Male
  Weight: 72 kg

DRUGS (4)
  1. VENCLEXTA [Suspect]
     Active Substance: VENETOCLAX
     Indication: Chronic lymphocytic leukaemia
     Dosage: 100 MG, TAKE 4 TABLET(S) BY MOUTH (400MG) ONCE A DAY WITH FOOD
     Route: 048
     Dates: start: 202403
  2. ETODOLAC [Concomitant]
     Active Substance: ETODOLAC
     Indication: Arthritis
     Route: 048
     Dates: start: 202403
  3. CITALOPRAM [Concomitant]
     Active Substance: CITALOPRAM
     Indication: Antiinflammatory therapy
     Route: 048
  4. TAMSULOSIN [Concomitant]
     Active Substance: TAMSULOSIN
     Indication: Product used for unknown indication
     Route: 048

REACTIONS (3)
  - Transplant [Unknown]
  - Hypoacusis [Unknown]
  - Memory impairment [Unknown]
